FAERS Safety Report 5725219-9 (Version None)
Quarter: 2008Q2

REPORT INFORMATION
  Report Type: 
  Country: None (occurrence: None)
  Receive Date: 20080501
  Receipt Date: 20080425
  Transmission Date: 20081010
  Serious: Yes (Other)
  Sender: FDA-Public Use
  Company Number: B0518661A

PATIENT
  Age: 42 Year
  Sex: Female

DRUGS (3)
  1. AMOXICILLIN + CLAVULANATE POTASSIUM [Suspect]
     Route: 065
     Dates: start: 20080229, end: 20080304
  2. MEFENAMIC ACID [Suspect]
     Route: 065
     Dates: start: 20080229, end: 20080304
  3. FUCIDIN CREAM [Suspect]
     Route: 065
     Dates: start: 20080229, end: 20080304

REACTIONS (3)
  - PRURITUS [None]
  - RASH [None]
  - URTICARIA [None]
